FAERS Safety Report 19502065 (Version 2)
Quarter: 2021Q3

REPORT INFORMATION
  Report Type: Other
  Country: IT (occurrence: IT)
  Receive Date: 20210707
  Receipt Date: 20210714
  Transmission Date: 20211014
  Serious: Yes (Other)
  Sender: FDA-Public Use
  Company Number: IT-ROCHE-2861074

PATIENT

DRUGS (6)
  1. OBINUTUZUMAB. [Suspect]
     Active Substance: OBINUTUZUMAB
     Indication: DIFFUSE LARGE B-CELL LYMPHOMA
     Dosage: CYCLE 1 FROM 1? 8?CYCLE 2  AND CYCLE 3?8 ON DAY 1
     Route: 042
  2. VENETOCLAX. [Suspect]
     Active Substance: VENETOCLAX
     Indication: DIFFUSE LARGE B-CELL LYMPHOMA
     Dosage: DAY 15 TO DAY 21 IN CYCLE 1
     Route: 065
  3. VENETOCLAX. [Suspect]
     Active Substance: VENETOCLAX
     Dosage: DAY 1 TO DAY 21 400 MG/DAY IN CYCLE 9?18
     Route: 065
  4. ATEZOLIZUMAB. [Suspect]
     Active Substance: ATEZOLIZUMAB
     Indication: DIFFUSE LARGE B-CELL LYMPHOMA
     Dosage: CYCLE 1 ON DAY 2?CYCLE 2 ON DAY 1?CYCLE 3?8 AND 9?18 ON DAY 1
     Route: 065
  5. VENETOCLAX. [Suspect]
     Active Substance: VENETOCLAX
     Dosage: 50 MG/DAY FROM DAY 1 TO 8?100MG/DAY FROM DAY8 TO DAY 15?AND 200MG/DAY FROM DAY 15 TO DAY 21
     Route: 065
  6. VENETOCLAX. [Suspect]
     Active Substance: VENETOCLAX
     Dosage: DAY 1 TO DAY 21 400 MG/DAY IN CYCLE 3?8
     Route: 065

REACTIONS (1)
  - Neutropenia [Unknown]
